FAERS Safety Report 17929766 (Version 5)
Quarter: 2023Q2

REPORT INFORMATION
  Report Type: Spontaneous
  Country: US (occurrence: US)
  Receive Date: 20200623
  Receipt Date: 20230626
  Transmission Date: 20230721
  Serious: No
  Sender: FDA-Public Use
  Company Number: US-PFIZER INC-2020240071

PATIENT
  Age: 65 Year
  Sex: Female

DRUGS (1)
  1. XELJANZ [Suspect]
     Active Substance: TOFACITINIB CITRATE
     Dosage: UNK
     Dates: start: 20200430

REACTIONS (7)
  - Muscle spasms [Unknown]
  - Illness [Unknown]
  - Vertigo [Unknown]
  - Disorientation [Unknown]
  - Condition aggravated [Unknown]
  - Migraine [Unknown]
  - Product dose omission issue [Unknown]
